FAERS Safety Report 14211616 (Version 14)
Quarter: 2019Q2

REPORT INFORMATION
  Report Type: Spontaneous
  Country: IT (occurrence: IT)
  Receive Date: 20171121
  Receipt Date: 20190610
  Transmission Date: 20190711
  Serious: Yes (Hospitalization, Other)
  Sender: FDA-Public Use
  Company Number: IT-MYLANLABS-2017M1073549

PATIENT
  Age: 41 Year
  Sex: Female

DRUGS (15)
  1. CYPROTERONE ACETATE [Suspect]
     Active Substance: CYPROTERONE ACETATE
     Indication: FEMINISATION ACQUIRED
     Dosage: 50 MG, QD
     Route: 009
  2. CYPROTERONE ACETATE [Suspect]
     Active Substance: CYPROTERONE ACETATE
     Indication: HORMONE SUPPRESSION THERAPY
     Dosage: 3.75 MILLIGRAM, MONTHLY
     Route: 009
  3. ESTRADIOL. [Suspect]
     Active Substance: ESTRADIOL
     Dosage: 3 MILLIGRAM,GEL FORMULATION
     Route: 062
  4. ESTRADIOL. [Suspect]
     Active Substance: ESTRADIOL
     Dosage: 1 MILLIGRAM, QD
     Route: 062
  5. ESTRADIOL. [Suspect]
     Active Substance: ESTRADIOL
     Indication: FEMINISATION ACQUIRED
     Dosage: 3 MG, QD, 3 MG PER DAY (3 MG, 1 IN 1 D)
     Route: 062
  6. ESTRADIOL. [Suspect]
     Active Substance: ESTRADIOL
     Indication: TRANSGENDER HORMONAL THERAPY
  7. ESTRADIOL. [Suspect]
     Active Substance: ESTRADIOL
     Indication: HORMONE SUPPRESSION THERAPY
     Dosage: 2 MILLIGRAM,GEL FORMULATION
     Route: 062
  8. ESTRADIOL. [Suspect]
     Active Substance: ESTRADIOL
     Dosage: UNK
     Route: 062
  9. ESTRADIOL. [Suspect]
     Active Substance: ESTRADIOL
     Indication: TRANSGENDER HORMONAL THERAPY
     Dosage: 2 MG PER DAY (2 MG, 1 IN 1 D)
     Route: 062
  10. CYPROTERONE ACETATE [Suspect]
     Active Substance: CYPROTERONE ACETATE
     Indication: TRANSGENDER HORMONAL THERAPY
     Dosage: 50 MG, QD
     Route: 065
  11. LEUPRORELIN ACETATE [Suspect]
     Active Substance: LEUPROLIDE ACETATE
     Indication: TRANSGENDER HORMONAL THERAPY
  12. ESTRADIOL. [Suspect]
     Active Substance: ESTRADIOL
     Dosage: 3.75 MG, MONTHLY
     Route: 062
  13. LEUPRORELIN ACETATE [Suspect]
     Active Substance: LEUPROLIDE ACETATE
     Indication: FEMINISATION ACQUIRED
     Dosage: 3.75 MG, MONTHLY
     Route: 051
  14. ESTRADIOL. [Suspect]
     Active Substance: ESTRADIOL
     Dosage: 1 MG PER DAY(1 MG, 1 IN 1 D)
     Route: 062
  15. ESTRADIOL. [Suspect]
     Active Substance: ESTRADIOL
     Indication: FEMINISATION ACQUIRED
     Dosage: 3.75 MG/MONTH (3.75 MG, 1 M) (ROUTE: INJECTION)
     Route: 051

REACTIONS (4)
  - Meningioma [Recovered/Resolved]
  - Prosopagnosia [Unknown]
  - Off label use [Unknown]
  - Reading disorder [Unknown]
